FAERS Safety Report 18390951 (Version 1)
Quarter: 2020Q4

REPORT INFORMATION
  Report Type: Report from Study
  Country: None (occurrence: US)
  Receive Date: 20201015
  Receipt Date: 20201015
  Transmission Date: 20210114
  Serious: Yes (Other)
  Sender: FDA-Public Use
  Company Number: US-ABBVIE-20K-163-3609459-00

PATIENT
  Sex: Female

DRUGS (6)
  1. RITUXAN [Suspect]
     Active Substance: RITUXIMAB
     Route: 065
     Dates: start: 20181219
  2. VENCLEXTA [Suspect]
     Active Substance: VENETOCLAX
     Indication: B-CELL SMALL LYMPHOCYTIC LYMPHOMA
     Dosage: TAKE 1 TABLET BY MOUTH FOR 2 WEEK(S) THEN TAKE 2 WEEKS OFF, REPEAT THE CYCLE
     Route: 048
  3. RITUXAN [Suspect]
     Active Substance: RITUXIMAB
     Dosage: 400MG ON 13-FEB-2019, 13-FEB-2018
     Route: 065
     Dates: start: 20180213
  4. RITUXAN [Suspect]
     Active Substance: RITUXIMAB
     Route: 065
     Dates: start: 20180928
  5. RITUXAN [Suspect]
     Active Substance: RITUXIMAB
     Indication: B-CELL SMALL LYMPHOCYTIC LYMPHOMA
     Dosage: DATES OF TREATMENT 16-JAN-2019, 10-APR-2019, 08-MAY-2019, 13-MAR-2019
     Route: 065
     Dates: start: 20180116
  6. RITUXAN [Suspect]
     Active Substance: RITUXIMAB
     Route: 065
     Dates: start: 20181121

REACTIONS (1)
  - Recurrent cancer [Unknown]
